FAERS Safety Report 20648185 (Version 2)
Quarter: 2022Q2

REPORT INFORMATION
  Report Type: Other
  Country: US (occurrence: None)
  Receive Date: 20220329
  Receipt Date: 20220408
  Transmission Date: 20220720
  Serious: Yes (Death)
  Sender: FDA-Public Use
  Company Number: US-ROCHE-3060865

PATIENT
  Age: 54 Year
  Sex: Male

DRUGS (42)
  1. LUCENTIS [Suspect]
     Active Substance: RANIBIZUMAB
     Indication: Type 2 diabetes mellitus
     Dosage: INTRAVITREAL ADMINISTRATION INTO LEFT EYE EVERY MONTH
     Route: 050
  2. LUCENTIS [Suspect]
     Active Substance: RANIBIZUMAB
  3. LUCENTIS [Suspect]
     Active Substance: RANIBIZUMAB
  4. CYMBALTA [Concomitant]
     Active Substance: DULOXETINE HYDROCHLORIDE
  5. LYRICA [Concomitant]
     Active Substance: PREGABALIN
  6. COREG [Concomitant]
     Active Substance: CARVEDILOL
  7. NOVOLIN NOS [Concomitant]
     Active Substance: INSULIN HUMAN
  8. ACETAMINOPHEN [Concomitant]
     Active Substance: ACETAMINOPHEN
  9. ALBUTEROL SULFATE [Concomitant]
     Active Substance: ALBUTEROL SULFATE
  10. ALPRAZOLAM [Concomitant]
     Active Substance: ALPRAZOLAM
  11. AMLODIPINE [Concomitant]
     Active Substance: AMLODIPINE BESYLATE
  12. ATORVASTATIN [Concomitant]
     Active Substance: ATORVASTATIN
  13. BASAGLAR [Concomitant]
     Active Substance: INSULIN GLARGINE
  14. CEFDINIR [Concomitant]
     Active Substance: CEFDINIR
  15. CEPHALEXIN [Concomitant]
     Active Substance: CEPHALEXIN
  16. CIPROFLOXACIN [Concomitant]
     Active Substance: CIPROFLOXACIN
  17. CLINDAMYCIN [Concomitant]
     Active Substance: CLINDAMYCIN
  18. COLCHICINE [Concomitant]
     Active Substance: COLCHICINE
  19. ASPIRIN [Concomitant]
     Active Substance: ASPIRIN
  20. DOXYCYCLINE [Concomitant]
     Active Substance: DOXYCYCLINE
  21. FERROUS SULFATE [Concomitant]
     Active Substance: FERROUS SULFATE
  22. FLUTICASONE [Concomitant]
     Active Substance: FLUTICASONE
  23. FOSFOMYCIN [Concomitant]
     Active Substance: FOSFOMYCIN
  24. FUROSEMIDE [Concomitant]
     Active Substance: FUROSEMIDE
  25. GENTAMICIN [Concomitant]
     Active Substance: GENTAMICIN
  26. IBUPROFEN [Concomitant]
     Active Substance: IBUPROFEN
  27. INDOMETHACIN [Concomitant]
     Active Substance: INDOMETHACIN
  28. IRBESARTAN [Concomitant]
     Active Substance: IRBESARTAN
  29. LEVETIRACETAM [Concomitant]
     Active Substance: LEVETIRACETAM
  30. LINEZOLID [Concomitant]
     Active Substance: LINEZOLID
  31. LOSARTAN [Concomitant]
     Active Substance: LOSARTAN
  32. METOPROLOL [Concomitant]
     Active Substance: METOPROLOL
  33. MUPIROCIN [Concomitant]
     Active Substance: MUPIROCIN
  34. NITROFURANTOIN [Concomitant]
     Active Substance: NITROFURANTOIN
  35. OMEPRAZOLE [Concomitant]
     Active Substance: OMEPRAZOLE
  36. OXYCODONE [Concomitant]
     Active Substance: OXYCODONE
  37. OZEMPIC [Concomitant]
     Active Substance: SEMAGLUTIDE
  38. PRAVASTATIN [Concomitant]
     Active Substance: PRAVASTATIN
  39. ROPINIROLE [Concomitant]
     Active Substance: ROPINIROLE
  40. COLLAGENASE SANTYL [Concomitant]
     Active Substance: COLLAGENASE CLOSTRIDIUM HISTOLYTICUM
  41. SULFAMETHOXAZOLE [Concomitant]
     Active Substance: SULFAMETHOXAZOLE
  42. XARELTO [Concomitant]
     Active Substance: RIVAROXABAN

REACTIONS (1)
  - Death [Fatal]

NARRATIVE: CASE EVENT DATE: 20220222
